FAERS Safety Report 14275891 (Version 4)
Quarter: 2018Q3

REPORT INFORMATION
  Report Type: Spontaneous
  Country: NO (occurrence: NO)
  Receive Date: 20171211
  Receipt Date: 20180830
  Transmission Date: 20181010
  Serious: Yes (Other)
  Sender: FDA-Public Use
  Company Number: NO-OTSUKA-2016_006570

PATIENT
  Age: 32 Year
  Sex: Male
  Weight: 130 kg

DRUGS (22)
  1. ZYPREXA [Suspect]
     Active Substance: OLANZAPINE
     Indication: SCHIZOAFFECTIVE DISORDER
  2. LAMICTAL [Concomitant]
     Active Substance: LAMOTRIGINE
     Dosage: 800 MILLIGRAM DAILY; 200 MG, QID
     Route: 065
  3. ABILIFY [Suspect]
     Active Substance: ARIPIPRAZOLE
     Indication: SCHIZOAFFECTIVE DISORDER
     Dosage: UNK
     Route: 065
     Dates: start: 20071121, end: 20150112
  4. ABILIFY [Suspect]
     Active Substance: ARIPIPRAZOLE
     Indication: PSYCHOTIC DISORDER
  5. SEROQUEL [Suspect]
     Active Substance: QUETIAPINE FUMARATE
     Indication: SCHIZOAFFECTIVE DISORDER
  6. STILNOCT [Concomitant]
     Active Substance: ZOLPIDEM TARTRATE
     Indication: PRODUCT USED FOR UNKNOWN INDICATION
     Dosage: UNK
     Route: 065
  7. SEROQUEL [Suspect]
     Active Substance: QUETIAPINE FUMARATE
     Indication: DEPRESSION
  8. ZYPREXA [Suspect]
     Active Substance: OLANZAPINE
     Indication: PARANOIA
     Dosage: UNK (7 YEAR)
     Route: 065
     Dates: start: 20071121, end: 20150112
  9. SEROQUEL [Suspect]
     Active Substance: QUETIAPINE FUMARATE
     Indication: PSYCHOTIC DISORDER
     Dosage: UNK
     Route: 065
     Dates: start: 20071121, end: 20150112
  10. QUETIAPIN ACTAVIS [Suspect]
     Active Substance: QUETIAPINE
     Indication: DEPRESSION
     Dosage: 200 MG, QID (7 YEARS)
     Route: 065
     Dates: start: 20071121, end: 20150112
  11. QUETIAPIN ACTAVIS [Suspect]
     Active Substance: QUETIAPINE
     Indication: SCHIZOAFFECTIVE DISORDER
  12. ZYPREXA [Suspect]
     Active Substance: OLANZAPINE
     Indication: PSYCHOTIC DISORDER
  13. ABILIFY [Suspect]
     Active Substance: ARIPIPRAZOLE
     Indication: DEPRESSION
  14. QUETIAPIN ACTAVIS [Suspect]
     Active Substance: QUETIAPINE
     Indication: PSYCHOTIC DISORDER
  15. ZYPREXA [Suspect]
     Active Substance: OLANZAPINE
     Indication: DEPRESSION
  16. CIPRALEX [Concomitant]
     Active Substance: ESCITALOPRAM OXALATE
     Indication: PRODUCT USED FOR UNKNOWN INDICATION
     Dosage: 20 MG, QD
     Route: 065
  17. EFEXOR [Concomitant]
     Active Substance: VENLAFAXINE HYDROCHLORIDE
     Indication: PRODUCT USED FOR UNKNOWN INDICATION
  18. ABILIFY [Suspect]
     Active Substance: ARIPIPRAZOLE
     Indication: PARANOIA
  19. SEROQUEL [Suspect]
     Active Substance: QUETIAPINE FUMARATE
     Indication: PARANOIA
  20. QUETIAPIN ACTAVIS [Suspect]
     Active Substance: QUETIAPINE
     Indication: PARANOIA
  21. LAMICTAL [Concomitant]
     Active Substance: LAMOTRIGINE
     Indication: PRODUCT USED FOR UNKNOWN INDICATION
     Dosage: 200 MG, QD
     Route: 065
  22. EFEXOR [Concomitant]
     Active Substance: VENLAFAXINE HYDROCHLORIDE
     Indication: PRODUCT USED FOR UNKNOWN INDICATION
     Dosage: UNK
     Route: 065

REACTIONS (10)
  - Increased appetite [Unknown]
  - Quality of life decreased [Not Recovered/Not Resolved]
  - Product use in unapproved indication [Unknown]
  - Weight increased [Not Recovered/Not Resolved]
  - Sedation [Unknown]
  - Depression [Unknown]
  - Food craving [Unknown]
  - Anxiety [Unknown]
  - Hyperphagia [Unknown]
  - Restlessness [Unknown]

NARRATIVE: CASE EVENT DATE: 20080201
